FAERS Safety Report 9507377 (Version 1)
Quarter: 2013Q3

REPORT INFORMATION
  Report Type: Report from Study
  Country: FR (occurrence: FR)
  Receive Date: 20130909
  Receipt Date: 20130909
  Transmission Date: 20140515
  Serious: Yes (Other)
  Sender: FDA-Public Use
  Company Number: FR-GENZYME-CAMP-1003135

PATIENT
  Sex: Male

DRUGS (1)
  1. CAMPATH [Suspect]
     Indication: CHRONIC LYMPHOCYTIC LEUKAEMIA
     Dosage: INFUSION OVER 2 H, 3X/W, DOSE ESCALATION UP TO 10 MG/INFUSION (DURATION 12 WEEKS)
     Route: 042
     Dates: end: 20130223

REACTIONS (1)
  - Therapeutic response decreased [Unknown]
